FAERS Safety Report 5656349-8 (Version None)
Quarter: 2008Q1

REPORT INFORMATION
  Report Type: 
  Country: None (occurrence: None)
  Receive Date: 20080309
  Receipt Date: 20080117
  Transmission Date: 20080703
  Serious: No
  Sender: FDA-Public Use
  Company Number: US-BAYER-200713938BCC

PATIENT
  Age: 65 Year
  Sex: Female
  Weight: 86 kg

DRUGS (5)
  1. ALEVE [Suspect]
     Dosage: TOTAL DAILY DOSE: 440 MG  UNIT DOSE: 220 MG
     Route: 048
     Dates: start: 20071123, end: 20071126
  2. SINGULAIR [Concomitant]
  3. ALBUTEROL [Concomitant]
  4. HIGH BLOOD MEDICATION [Concomitant]
  5. HIGH CHOLESTEROL MEDICATION [Concomitant]

REACTIONS (1)
  - FATIGUE [None]
